FAERS Safety Report 12199483 (Version 1)
Quarter: 2016Q1

REPORT INFORMATION
  Report Type: Spontaneous
  Country: US (occurrence: US)
  Receive Date: 20160322
  Receipt Date: 20160322
  Transmission Date: 20160526
  Serious: No
  Sender: FDA-Public Use
  Company Number: US-TEVA-630008USA

PATIENT
  Age: 56 Year
  Sex: Female

DRUGS (5)
  1. ACETAMINOPHEN AND CODEINE [Suspect]
     Active Substance: ACETAMINOPHEN\CODEINE PHOSPHATE
     Indication: PAIN MANAGEMENT
     Dosage: 300/60 MG
     Dates: start: 20150216, end: 20150716
  2. SUCRALFATE. [Interacting]
     Active Substance: SUCRALFATE
     Indication: ABDOMINAL DISCOMFORT
  3. ACETAMINOPHEN AND CODEINE [Interacting]
     Active Substance: ACETAMINOPHEN\CODEINE PHOSPHATE
     Indication: BACK PAIN
  4. ACETAMINOPHEN AND CODEINE [Interacting]
     Active Substance: ACETAMINOPHEN\CODEINE PHOSPHATE
     Indication: SPINAL OSTEOARTHRITIS
  5. SUCRALFATE. [Interacting]
     Active Substance: SUCRALFATE
     Indication: ABDOMINAL PAIN
     Dates: start: 20150630, end: 20150716

REACTIONS (8)
  - Drug interaction [Recovered/Resolved]
  - Diarrhoea [Recovered/Resolved]
  - Headache [Recovered/Resolved]
  - Nausea [Recovered/Resolved]
  - Muscle spasms [Recovered/Resolved]
  - Drug ineffective [Recovered/Resolved]
  - Abdominal pain [Recovered/Resolved]
  - Abdominal distension [Recovered/Resolved]
